FAERS Safety Report 7370500-3 (Version None)
Quarter: 2011Q1

REPORT INFORMATION
  Report Type: 
  Country: None (occurrence: None)
  Receive Date: 20110323
  Receipt Date: 20110314
  Transmission Date: 20110831
  Serious: Yes (Other)
  Sender: FDA-Public Use
  Company Number: US-ASTRAZENECA-2011SE14546

PATIENT
  Age: 71 Year
  Sex: Female

DRUGS (1)
  1. CRESTOR [Suspect]
     Route: 048

REACTIONS (5)
  - LOWER LIMB FRACTURE [None]
  - OSTEOPOROSIS [None]
  - WRIST FRACTURE [None]
  - FALL [None]
  - BONE DENSITY DECREASED [None]
